FAERS Safety Report 21509118 (Version 1)
Quarter: 2022Q4

REPORT INFORMATION
  Report Type: Spontaneous
  Country: US (occurrence: None)
  Receive Date: 20221026
  Receipt Date: 20221026
  Transmission Date: 20230112
  Serious: Yes (Life-Threatening, Hospitalization, Other)
  Sender: FDA-Public Use
  Company Number: None

PATIENT
  Age: 31 Year
  Sex: Female
  Weight: 58.5 kg

DRUGS (2)
  1. TESTOSTERONE [Suspect]
     Active Substance: TESTOSTERONE
     Indication: Trans-sexualism
     Dosage: OTHER FREQUENCY : WEEKLY;?
     Route: 030
     Dates: start: 20210401
  2. VITAMIN D [Concomitant]
     Active Substance: VITAMIN D NOS

REACTIONS (4)
  - Mental disorder [None]
  - Illness [None]
  - Suicidal behaviour [None]
  - Recalled product administered [None]

NARRATIVE: CASE EVENT DATE: 20211117
